FAERS Safety Report 4995920-3 (Version None)
Quarter: 2006Q2

REPORT INFORMATION
  Report Type: 
  Country: None (occurrence: None)
  Receive Date: 20060508
  Receipt Date: 20050914
  Transmission Date: 20061013
  Serious: Yes (Hospitalization, Other)
  Sender: FDA-Public Use
  Company Number: US-MERCK-0509USA01916

PATIENT
  Age: 57 Year
  Sex: Female

DRUGS (1)
  1. VIOXX [Suspect]
     Indication: ARTHRALGIA
     Route: 048
     Dates: start: 19991201, end: 20040930

REACTIONS (27)
  - ACUTE CORONARY SYNDROME [None]
  - ANAEMIA [None]
  - ANGINA PECTORIS [None]
  - ANGINA UNSTABLE [None]
  - ARTERIAL STENOSIS [None]
  - ARTHROPATHY [None]
  - ATRIAL FIBRILLATION [None]
  - BRONCHITIS ACUTE [None]
  - BURSITIS [None]
  - CARDIAC DISORDER [None]
  - CARDIAC FAILURE CONGESTIVE [None]
  - CARDIOVASCULAR DISORDER [None]
  - CHEST PAIN [None]
  - CHRONIC OBSTRUCTIVE PULMONARY DISEASE [None]
  - CORONARY ARTERY DISEASE [None]
  - DEPRESSION [None]
  - DYSPNOEA [None]
  - FALL [None]
  - FLUID RETENTION [None]
  - HYPOKALAEMIA [None]
  - MYOCARDIAL INFARCTION [None]
  - OEDEMA [None]
  - PAIN IN EXTREMITY [None]
  - PNEUMONIA [None]
  - SCIATICA [None]
  - SCOLIOSIS [None]
  - VENOUS STENOSIS [None]
